FAERS Safety Report 4926972-4 (Version None)
Quarter: 2006Q1

REPORT INFORMATION
  Report Type: 
  Country: None (occurrence: None)
  Receive Date: 20060228
  Receipt Date: 20050923
  Transmission Date: 20060701
  Serious: No
  Sender: FDA-Public Use
  Company Number: US-GLAXOSMITHKLINE-A0575967A

PATIENT
  Age: 33 Year
  Sex: Female

DRUGS (4)
  1. LAMICTAL [Suspect]
     Dosage: 100MG PER DAY
     Route: 048
     Dates: start: 20050801, end: 20050101
  2. WELLBUTRIN SR [Suspect]
     Indication: DRUG USE FOR UNKNOWN INDICATION
     Dosage: 500MG PER DAY
     Route: 048
  3. ZOLOFT [Concomitant]
     Dosage: 50MG PER DAY
     Route: 048
  4. DETROL [Concomitant]
     Route: 065

REACTIONS (2)
  - RASH [None]
  - RASH MACULO-PAPULAR [None]
